FAERS Safety Report 11591027 (Version 2)
Quarter: 2016Q1

REPORT INFORMATION
  Report Type: Report from Study
  Country: DO (occurrence: DO)
  Receive Date: 20151003
  Receipt Date: 20160215
  Transmission Date: 20160525
  Serious: Yes (Hospitalization)
  Sender: FDA-Public Use
  Company Number: DO-ABBVIE-15K-279-1467890-00

PATIENT
  Age: 34 Year
  Sex: Male
  Weight: 74 kg

DRUGS (3)
  1. IMUREL [Concomitant]
     Active Substance: AZATHIOPRINE SODIUM
     Indication: PRODUCT USED FOR UNKNOWN INDICATION
     Route: 048
  2. HUMIRA [Suspect]
     Active Substance: ADALIMUMAB
     Route: 058
  3. HUMIRA [Suspect]
     Active Substance: ADALIMUMAB
     Indication: CROHN^S DISEASE
     Route: 058
     Dates: start: 20140223, end: 20150925

REACTIONS (9)
  - Proctalgia [Recovered/Resolved with Sequelae]
  - Proctalgia [Recovered/Resolved with Sequelae]
  - Anal fistula [Recovered/Resolved with Sequelae]
  - Anal fistula [Recovered/Resolved with Sequelae]
  - Constipation [Unknown]
  - Anal fistula infection [Recovered/Resolved with Sequelae]
  - Post procedural discomfort [Not Recovered/Not Resolved]
  - Abdominal pain [Recovered/Resolved]
  - Pyrexia [Recovered/Resolved]

NARRATIVE: CASE EVENT DATE: 201501
